FAERS Safety Report 10266040 (Version 1)
Quarter: 2014Q2

REPORT INFORMATION
  Report Type: Report from Study
  Country: DE (occurrence: DE)
  Receive Date: 20140627
  Receipt Date: 20140627
  Transmission Date: 20141212
  Serious: Yes (Other)
  Sender: FDA-Public Use
  Company Number: DE-BAYER-2014-097111

PATIENT
  Age: 58 Year
  Sex: Female

DRUGS (2)
  1. BETAFERON [Suspect]
     Indication: MULTIPLE SCLEROSIS
     Dosage: 250 ?G, QOD
     Route: 058
     Dates: start: 20020101
  2. INSULIN [Concomitant]
     Indication: DIABETES MELLITUS

REACTIONS (3)
  - Haemorrhage [Recovered/Resolved]
  - Pyrexia [Recovered/Resolved]
  - Chills [Recovered/Resolved]
